FAERS Safety Report 9630397 (Version 1)
Quarter: 2013Q4

REPORT INFORMATION
  Report Type: Spontaneous
  Country: US (occurrence: US)
  Receive Date: 20131018
  Receipt Date: 20131018
  Transmission Date: 20140711
  Serious: Yes (Other)
  Sender: FDA-Public Use
  Company Number: US-BIOGENIDEC-2013BI099719

PATIENT
  Age: 21 Year
  Sex: Female
  Weight: 88 kg

DRUGS (11)
  1. AVONEX [Suspect]
     Indication: RELAPSING-REMITTING MULTIPLE SCLEROSIS
     Route: 030
     Dates: start: 20121013
  2. PHENOBARBITAL [Concomitant]
  3. VALPROIC ACID [Concomitant]
  4. GABAPENTIN [Concomitant]
  5. LAMOTRIGINE [Concomitant]
  6. PRIMIDONE [Concomitant]
  7. TOPIRAMATE [Concomitant]
  8. TIAGABINE [Concomitant]
  9. ZOLOFT [Concomitant]
     Route: 048
  10. LIDEX [Concomitant]
     Route: 061
  11. PENICILLIN [Concomitant]
     Indication: PHARYNGITIS

REACTIONS (1)
  - Caesarean section [Unknown]
